FAERS Safety Report 8600455-2 (Version None)
Quarter: 2012Q3

REPORT INFORMATION
  Report Type: 
  Country: None (occurrence: None)
  Receive Date: 20120817
  Receipt Date: 20120803
  Transmission Date: 20120928
  Serious: No
  Sender: FDA-Public Use
  Company Number: JP-ELI_LILLY_AND_COMPANY-JP201208002092

PATIENT
  Age: 52 Year
  Sex: Male

DRUGS (6)
  1. GASCON [Concomitant]
     Dosage: UNK
     Route: 048
  2. CYMBALTA [Suspect]
     Dosage: 30 MG, QD
     Route: 048
     Dates: start: 20120626, end: 20120723
  3. AMARYL [Concomitant]
     Dosage: UNK
     Route: 048
  4. MIGLITOL [Concomitant]
     Dosage: UNK
     Route: 048
  5. CYMBALTA [Suspect]
     Indication: DIABETIC NEUROPATHY
     Dosage: 20 MG, QD
     Route: 048
     Dates: start: 20120612, end: 20120625
  6. CYMBALTA [Suspect]
     Dosage: 40 MG, QD
     Route: 048
     Dates: start: 20120724, end: 20120724

REACTIONS (1)
  - HEPATIC FUNCTION ABNORMAL [None]
